FAERS Safety Report 4757059-1 (Version None)
Quarter: 2005Q3

REPORT INFORMATION
  Report Type: 
  Country: None (occurrence: None)
  Receive Date: 20050829
  Receipt Date: 20050829
  Transmission Date: 20060218
  Serious: Yes (Life-Threatening, Hospitalization)
  Sender: FDA-Public Use
  Company Number: None

PATIENT
  Age: 24 Year
  Sex: Male
  Weight: 76.8847 kg

DRUGS (8)
  1. PENTASA [Suspect]
     Indication: BLOOD IMMUNOGLOBULIN G INCREASED
     Dosage: 500 MG TID PO
     Route: 048
     Dates: start: 20050601, end: 20050825
  2. PENTASA [Suspect]
     Indication: FOOD ALLERGY
     Dosage: 500 MG TID PO
     Route: 048
     Dates: start: 20050601, end: 20050825
  3. ALAVERT [Concomitant]
  4. NEXIUM [Concomitant]
  5. MIRALAX [Concomitant]
  6. GASTROCROM [Concomitant]
  7. CARAFATE [Concomitant]
  8. M.V.I. [Concomitant]

REACTIONS (2)
  - PETECHIAE [None]
  - THROMBOCYTOPENIA [None]
